FAERS Safety Report 8144110-4 (Version None)
Quarter: 2012Q1

REPORT INFORMATION
  Report Type: 
  Country: None (occurrence: None)
  Receive Date: 20120217
  Receipt Date: 20120215
  Transmission Date: 20120608
  Serious: Yes (Other)
  Sender: FDA-Public Use
  Company Number: US-SHIRE-ALL1-2011-05013

PATIENT
  Sex: Male
  Weight: 79.365 kg

DRUGS (6)
  1. GLIPIZIDE [Concomitant]
     Indication: DIABETES MELLITUS
     Dosage: 10 MG, 1X/DAY:QD
     Route: 048
     Dates: start: 20090101
  2. VYVANSE [Suspect]
     Indication: ATTENTION DEFICIT/HYPERACTIVITY DISORDER
     Dosage: 100 MG, 2X/DAY:BID
     Route: 048
     Dates: start: 20090101
  3. WELLBUTRIN XL [Concomitant]
     Indication: DEPRESSION
     Dosage: 150 MG, 1X/DAY:QD
     Route: 048
     Dates: start: 20090101
  4. ASPIRIN [Concomitant]
     Indication: ATRIAL FIBRILLATION
     Dosage: 81 MG, 1X/DAY:QD
     Route: 048
     Dates: start: 20090101
  5. VYVANSE [Suspect]
     Indication: MEMORY IMPAIRMENT
  6. NUVIGIL [Concomitant]
     Indication: MEMORY IMPAIRMENT
     Dosage: 150 MG, 1X/DAY:QD
     Route: 048

REACTIONS (5)
  - OVERDOSE [None]
  - DRUG INEFFECTIVE [None]
  - PRODUCT QUALITY ISSUE [None]
  - INAPPROPRIATE SCHEDULE OF DRUG ADMINISTRATION [None]
  - DIABETES MELLITUS [None]
